FAERS Safety Report 24898295 (Version 1)
Quarter: 2025Q1

REPORT INFORMATION
  Report Type: Spontaneous
  Country: DE (occurrence: DE)
  Receive Date: 20250129
  Receipt Date: 20250129
  Transmission Date: 20250409
  Serious: No
  Sender: TRAVERE THERAPEUTICS
  Company Number: DE-BEH-2024187985

PATIENT
  Sex: Male

DRUGS (2)
  1. FILSPARI [Suspect]
     Active Substance: SPARSENTAN
     Indication: Transplant rejection
     Route: 065
  2. FILSPARI [Suspect]
     Active Substance: SPARSENTAN
     Indication: Chronic allograft nephropathy
     Route: 065

REACTIONS (1)
  - Off label use [Unknown]
